FAERS Safety Report 5399448-0 (Version None)
Quarter: 2007Q3

REPORT INFORMATION
  Report Type: 
  Country: None (occurrence: None)
  Receive Date: 20070727
  Receipt Date: 20070719
  Transmission Date: 20080115
  Serious: Yes (Death)
  Sender: FDA-Public Use
  Company Number: US-PURDUE-USA_2007_0028447

PATIENT
  Age: 71 Year
  Sex: Male

DRUGS (5)
  1. OXYCONTIN [Suspect]
     Indication: CHRONIC OBSTRUCTIVE PULMONARY DISEASE
     Dosage: 20 MG, UNK
     Route: 048
  2. FENTANYL TRANSDERMAL SYSTEM [Concomitant]
     Indication: BREAKTHROUGH PAIN
     Dosage: UNK, UNK
     Route: 062
  3. PERCOCET [Concomitant]
     Indication: BREAKTHROUGH PAIN
     Dosage: UNK MG, UNK
     Route: 048
  4. LEVAQUIN [Concomitant]
     Indication: PNEUMONIA
     Dosage: UNK, UNK
  5. ROCEPHIN [Concomitant]
     Indication: PNEUMONIA
     Dosage: UNK, UNK

REACTIONS (1)
  - DEATH [None]
